FAERS Safety Report 11038147 (Version 1)
Quarter: 2015Q2

REPORT INFORMATION
  Report Type: Spontaneous
  Country: JP (occurrence: None)
  Receive Date: 20150414
  Receipt Date: 20150414
  Transmission Date: 20150821
  Serious: Yes (Other)
  Sender: FDA-Public Use
  Company Number: 2015BV000029

PATIENT

DRUGS (4)
  1. PHENOBARBITAL (PHENOBARBITAL) [Concomitant]
     Active Substance: PHENOBARBITAL
  2. DIAZEPAM. [Concomitant]
     Active Substance: DIAZEPAM
  3. CLONAZEPAM (CLONAZEPAM) [Concomitant]
     Active Substance: CLONAZEPAM
  4. VALPROATE [Suspect]
     Active Substance: VALPROIC ACID
     Indication: PRODUCT USED FOR UNKNOWN INDICATION

REACTIONS (1)
  - Fanconi syndrome [None]
